FAERS Safety Report 21159412 (Version 1)
Quarter: 2022Q3

REPORT INFORMATION
  Report Type: Spontaneous
  Country: DE (occurrence: DE)
  Receive Date: 20220802
  Receipt Date: 20220802
  Transmission Date: 20221027
  Serious: Yes (Other)
  Sender: FDA-Public Use
  Company Number: None

PATIENT
  Age: 76 Year
  Sex: Female
  Weight: 81 kg

DRUGS (9)
  1. ATORVASTATIN [Suspect]
     Active Substance: ATORVASTATIN
     Indication: Myocardial infarction
     Dosage: VERSCHIEDENE DOSIEUNG BIS ZUR NIEDRIGEN DOSIS VON 5 MG ROSUVASTATIN (DIFFERENT DOSES UP TO THE LOW D
     Route: 048
     Dates: start: 201609, end: 20220718
  2. ATORVASTATIN [Suspect]
     Active Substance: ATORVASTATIN
     Indication: Coronary arterial stent insertion
  3. ATORVASTATIN [Suspect]
     Active Substance: ATORVASTATIN
     Indication: Coronary artery disease
  4. SIMVASTATIN [Suspect]
     Active Substance: SIMVASTATIN
     Indication: Coronary arterial stent insertion
     Dosage: VERSCHIEDENE DOSIEUNG BIS ZUR NIEDRIGEN DOSIS VON 5 MG ROSUVASTATIN (DIFFERENT DOSES UP TO THE LOW D
     Route: 048
     Dates: start: 201609, end: 20220718
  5. SIMVASTATIN [Suspect]
     Active Substance: SIMVASTATIN
     Indication: Myocardial infarction
  6. SIMVASTATIN [Suspect]
     Active Substance: SIMVASTATIN
     Indication: Coronary artery disease
  7. ROSUVASTATIN [Suspect]
     Active Substance: ROSUVASTATIN
     Indication: Coronary artery disease
     Dosage: VERSCHIEDENE DOSIEUNG BIS ZUR NIEDRIGEN DOSIS VON 5 MG ROSUVASTATIN (DIFFERENT DOSES UP TO THE LOW D
     Route: 048
     Dates: start: 201609, end: 20220718
  8. ROSUVASTATIN [Suspect]
     Active Substance: ROSUVASTATIN
     Indication: Coronary arterial stent insertion
  9. ROSUVASTATIN [Suspect]
     Active Substance: ROSUVASTATIN
     Indication: Myocardial infarction

REACTIONS (2)
  - Blood creatine phosphokinase increased [Recovering/Resolving]
  - Myalgia [Recovering/Resolving]

NARRATIVE: CASE EVENT DATE: 20160901
